FAERS Safety Report 10206826 (Version 1)
Quarter: 2014Q2

REPORT INFORMATION
  Report Type: Spontaneous
  Country: US (occurrence: None)
  Receive Date: 20140528
  Receipt Date: 20140528
  Transmission Date: 20141212
  Serious: Yes (Other)
  Sender: FDA-Public Use
  Company Number: None

PATIENT
  Age: 74 Year
  Sex: Female
  Weight: 49.9 kg

DRUGS (2)
  1. FIORICET WATSON USE TO [Suspect]
     Indication: MIGRAINE
     Dosage: 1 PILL 6-8 HRS?WHEN NEEDED ?BY MOUTH?
     Route: 048
  2. MULTIP VITAMINS [Concomitant]

REACTIONS (2)
  - Dizziness [None]
  - Drug ineffective [None]
